FAERS Safety Report 9650342 (Version 2)
Quarter: 2013Q4

REPORT INFORMATION
  Report Type: Spontaneous
  Country: US (occurrence: US)
  Receive Date: 20131028
  Receipt Date: 20131028
  Transmission Date: 20140711
  Serious: No
  Sender: FDA-Public Use
  Company Number: US-PURDUE-USA-2012-0082977

PATIENT
  Age: 56 Year
  Sex: Male

DRUGS (1)
  1. OXYCONTIN (NDA 22-272) [Suspect]
     Indication: PAIN
     Dosage: 160 MG, TID
     Route: 048
     Dates: start: 2007

REACTIONS (5)
  - Medication residue present [Not Recovered/Not Resolved]
  - Agitation [Recovered/Resolved]
  - Constipation [Not Recovered/Not Resolved]
  - Inadequate analgesia [Recovered/Resolved]
  - Drug ineffective [Not Recovered/Not Resolved]
